FAERS Safety Report 7437232-4 (Version None)
Quarter: 2011Q2

REPORT INFORMATION
  Report Type: 
  Country: None (occurrence: None)
  Receive Date: 20110426
  Receipt Date: 20110421
  Transmission Date: 20111010
  Serious: Yes (Other)
  Sender: FDA-Public Use
  Company Number: NL-BRISTOL-MYERS SQUIBB COMPANY-15664972

PATIENT
  Age: 74 Year
  Sex: Female

DRUGS (5)
  1. INSULIN DETEMIR [Suspect]
     Indication: TYPE 2 DIABETES MELLITUS
  2. BLINDED: PLACEBO [Suspect]
     Indication: TYPE 2 DIABETES MELLITUS
     Dates: start: 20101005
  3. METFORMIN HCL [Suspect]
     Indication: TYPE 2 DIABETES MELLITUS
  4. INSULIN ASPART [Suspect]
     Indication: TYPE 2 DIABETES MELLITUS
  5. BLINDED: SAXAGLIPTIN [Suspect]
     Indication: TYPE 2 DIABETES MELLITUS
     Dates: start: 20101005

REACTIONS (1)
  - SYNCOPE [None]
